FAERS Safety Report 7217192-1 (Version None)
Quarter: 2011Q1

REPORT INFORMATION
  Report Type: 
  Country: None (occurrence: None)
  Receive Date: 20110110
  Receipt Date: 20110106
  Transmission Date: 20110831
  Serious: No
  Sender: FDA-Public Use
  Company Number: US-ROXANE LABORATORIES, INC.-2011-RO-00026RO

PATIENT
  Sex: Male

DRUGS (2)
  1. REGLAN [Suspect]
     Dates: start: 19940101, end: 20050101
  2. METOCLOPRAMIDE [Suspect]
     Dates: start: 19940101, end: 20050101

REACTIONS (3)
  - TARDIVE DYSKINESIA [None]
  - DYSTONIA [None]
  - EXTRAPYRAMIDAL DISORDER [None]
